FAERS Safety Report 8458462-9 (Version None)
Quarter: 2012Q2

REPORT INFORMATION
  Report Type: 
  Country: None (occurrence: None)
  Receive Date: 20120622
  Receipt Date: 20120614
  Transmission Date: 20120825
  Serious: Yes (Other)
  Sender: FDA-Public Use
  Company Number: US-PURDUE-USA-2012-0080951

PATIENT
  Sex: Male
  Weight: 87.528 kg

DRUGS (5)
  1. OXYCODONE HCL [Suspect]
     Indication: BACK PAIN
     Dosage: 15 MG, Q6H
  2. OXYCONTIN [Suspect]
     Indication: BACK PAIN
     Dosage: 40 MG, Q12H
     Route: 048
  3. OXYCONTIN [Suspect]
     Dosage: 20 MG, Q12H
     Route: 048
  4. VALIUM [Suspect]
     Indication: MUSCLE SPASMS
     Dosage: 10 MG, TID
  5. NAPROXEN [Concomitant]
     Indication: BREAKTHROUGH PAIN

REACTIONS (5)
  - LIMB INJURY [None]
  - ASTHENIA [None]
  - INGUINAL HERNIA [None]
  - ROAD TRAFFIC ACCIDENT [None]
  - DRUG EFFECT DECREASED [None]
